FAERS Safety Report 19384089 (Version 2)
Quarter: 2021Q2

REPORT INFORMATION
  Report Type: Spontaneous
  Country: US (occurrence: US)
  Receive Date: 20210608
  Receipt Date: 20210625
  Transmission Date: 20210717
  Serious: Yes (Hospitalization, Other)
  Sender: FDA-Public Use
  Company Number: US-DRREDDYS-USA/USA/21/0136417

PATIENT
  Age: 38 Year
  Sex: Male

DRUGS (15)
  1. BENZATROPINE [Suspect]
     Active Substance: BENZTROPINE
     Indication: DROOLING
     Dosage: AT BEDTIME
     Route: 048
  2. PRAZOSIN. [Concomitant]
     Active Substance: PRAZOSIN
     Indication: NIGHTMARE
     Dosage: 12 MG ORALLY AT BEDTIME FOR NIGHTMARES
     Route: 048
  3. CLOZAPINE. [Concomitant]
     Active Substance: CLOZAPINE
     Dosage: 500 MG AT BEDTIME
     Route: 048
  4. GABAPENTIN. [Concomitant]
     Active Substance: GABAPENTIN
     Indication: PRODUCT USED FOR UNKNOWN INDICATION
     Dosage: 600 MG ORALLY TWICE DAILY
     Route: 048
  5. PROPRANOLOL [Concomitant]
     Active Substance: PROPRANOLOL HYDROCHLORIDE
     Indication: AKATHISIA
     Dosage: 20 MG ORALLY TWICE DAILY
     Route: 048
  6. BACLOFEN. [Suspect]
     Active Substance: BACLOFEN
     Indication: PRODUCT USED FOR UNKNOWN INDICATION
  7. CLOZAPINE. [Concomitant]
     Active Substance: CLOZAPINE
     Indication: PSYCHOTIC DISORDER
     Dosage: 50 MG IN THE MORNING.ON CLOZAPINE FOR 47 MONTHS AND WITHOUT A DOSE CHANGE IN 34 MONTHS
     Route: 048
  8. METHOCARBAMOL INJECTION [Suspect]
     Active Substance: METHOCARBAMOL
     Indication: PRODUCT USED FOR UNKNOWN INDICATION
  9. BUPROPION. [Concomitant]
     Active Substance: BUPROPION
     Route: 048
  10. BENZATROPINE [Suspect]
     Active Substance: BENZTROPINE
     Indication: BIPOLAR DISORDER
  11. BUPROPION. [Concomitant]
     Active Substance: BUPROPION
     Indication: TOBACCO USER
     Dosage: IN THE MORNING
     Route: 048
  12. GABAPENTIN. [Concomitant]
     Active Substance: GABAPENTIN
     Dosage: 1200 MG ORALLY AT BEDTIME
     Route: 048
  13. ROPINIROLE HYDROCHLORIDE XR 2 MG, 4 MG, 6 MG, 8 MG AND 12 MG TABLETS [Suspect]
     Active Substance: ROPINIROLE HYDROCHLORIDE
     Indication: PRODUCT USED FOR UNKNOWN INDICATION
  14. BENZATROPINE [Suspect]
     Active Substance: BENZTROPINE
     Indication: SCHIZOAFFECTIVE DISORDER
  15. PAROXETINE. [Concomitant]
     Active Substance: PAROXETINE
     Indication: AFFECTIVE DISORDER
     Route: 048

REACTIONS (2)
  - Epilepsy [Recovered/Resolved]
  - Tardive dyskinesia [Not Recovered/Not Resolved]
